FAERS Safety Report 8115676-5 (Version None)
Quarter: 2012Q1

REPORT INFORMATION
  Report Type: 
  Country: None (occurrence: None)
  Receive Date: 20120206
  Receipt Date: 20120131
  Transmission Date: 20120608
  Serious: Yes (Hospitalization, Other)
  Sender: FDA-Public Use
  Company Number: US-SANOFI-AVENTIS-2012SA006478

PATIENT
  Age: 47 Year
  Sex: Female

DRUGS (4)
  1. COUMADIN [Concomitant]
     Indication: PULMONARY EMBOLISM
     Dates: start: 20021201, end: 20110901
  2. LOVENOX [Suspect]
     Indication: PROPHYLAXIS
     Route: 065
     Dates: start: 20110901, end: 20111220
  3. LOVENOX [Suspect]
     Route: 065
     Dates: start: 20111222
  4. LOVENOX [Suspect]
     Route: 065
     Dates: start: 20111220, end: 20111222

REACTIONS (7)
  - THERAPY REGIMEN CHANGED [None]
  - CARDIAC DISORDER [None]
  - HYPOTENSION [None]
  - WEIGHT DECREASED [None]
  - INJECTION SITE HAEMATOMA [None]
  - SINUS BRADYCARDIA [None]
  - INJECTION SITE NODULE [None]
